FAERS Safety Report 26082358 (Version 1)
Quarter: 2025Q4

REPORT INFORMATION
  Report Type: Spontaneous
  Country: CN (occurrence: CN)
  Receive Date: 20251124
  Receipt Date: 20251124
  Transmission Date: 20260117
  Serious: Yes (Hospitalization)
  Sender: ROCHE
  Company Number: CN-ROCHE-10000437823

PATIENT
  Age: 61 Year
  Sex: Female

DRUGS (1)
  1. ALECTINIB HYDROCHLORIDE [Suspect]
     Active Substance: ALECTINIB HYDROCHLORIDE
     Indication: Lung neoplasm malignant
     Route: 048
     Dates: start: 20250724, end: 20251030

REACTIONS (3)
  - Pericarditis [Recovering/Resolving]
  - Pericardial effusion [Recovering/Resolving]
  - Chest discomfort [Recovering/Resolving]
